FAERS Safety Report 17447068 (Version 1)
Quarter: 2020Q1

REPORT INFORMATION
  Report Type: Spontaneous
  Country: JP (occurrence: JP)
  Receive Date: 20200221
  Receipt Date: 20200221
  Transmission Date: 20200409
  Serious: Yes (Other)
  Sender: FDA-Public Use
  Company Number: JP-PFIZER INC-2020073010

PATIENT
  Age: 1 Year
  Sex: Male
  Weight: 10 kg

DRUGS (6)
  1. VINCRISTINE [Suspect]
     Active Substance: VINCRISTINE
     Indication: NEPHROBLASTOMA
     Dosage: UNK, CYCLIC
  2. ACTINOMYCIN D [Suspect]
     Active Substance: DACTINOMYCIN
     Indication: NEPHROBLASTOMA
     Dosage: UNK, CYCLIC
  3. ACTINOMYCIN D [Suspect]
     Active Substance: DACTINOMYCIN
     Dosage: UNK, CYCLIC (DOSAGE DECREASED TO TWO-THIRDS THE ORIGINAL DOSAGE STARTING IN WEEK 3)
  4. VINCRISTINE [Suspect]
     Active Substance: VINCRISTINE
     Dosage: UNK, CYCLIC (DOSAGE DECREASED TO TWO-THIRDS THE ORIGINAL DOSAGE STARTING IN WEEK 3)
  5. DOXORUBICIN HCL [Suspect]
     Active Substance: DOXORUBICIN HYDROCHLORIDE
     Indication: NEPHROBLASTOMA
     Dosage: UNK, CYCLIC
  6. DOXORUBICIN HCL [Suspect]
     Active Substance: DOXORUBICIN HYDROCHLORIDE
     Dosage: UNK, CYCLIC (DOSAGE DECREASED TO TWO-THIRDS THE ORIGINAL DOSAGE STARTING IN WEEK 3)

REACTIONS (5)
  - Staphylococcal infection [Recovering/Resolving]
  - Clostridium difficile colitis [Recovering/Resolving]
  - Bone marrow failure [Recovered/Resolved]
  - Ileus paralytic [Unknown]
  - Febrile neutropenia [Unknown]
